FAERS Safety Report 24557048 (Version 1)
Quarter: 2024Q4

REPORT INFORMATION
  Report Type: Spontaneous
  Country: NL (occurrence: NL)
  Receive Date: 20241028
  Receipt Date: 20241028
  Transmission Date: 20250115
  Serious: Yes (Hospitalization, Other)
  Sender: AUROBINDO
  Company Number: NL-AUROBINDO-AUR-APL-2014-07739

PATIENT
  Age: 46 Year
  Sex: Male

DRUGS (19)
  1. DOXORUBICIN [Suspect]
     Active Substance: DOXORUBICIN
     Indication: Diffuse large B-cell lymphoma
     Dosage: UNK (R-CHOP 1ST COURSE)
     Route: 065
  2. DOXORUBICIN [Suspect]
     Active Substance: DOXORUBICIN
     Indication: Non-Hodgkin^s lymphoma
     Dosage: UNK (R-CHOP 2ND COURSE)
     Route: 065
  3. DOXORUBICIN [Suspect]
     Active Substance: DOXORUBICIN
     Dosage: UNK (R-CHOP 3RD COURSE)
     Route: 065
  4. PREDNISONE [Suspect]
     Active Substance: PREDNISONE
     Indication: Diffuse large B-cell lymphoma
     Dosage: UNK (R-CHOP 1ST COURSE)
     Route: 065
  5. PREDNISONE [Suspect]
     Active Substance: PREDNISONE
     Indication: Non-Hodgkin^s lymphoma
     Dosage: UNK (R-CHOP 2ND COURSE)
     Route: 065
  6. PREDNISONE [Suspect]
     Active Substance: PREDNISONE
     Dosage: UNK (R-CHOP 3RD COURSE)
     Route: 065
  7. CYCLOPHOSPHAMIDE [Suspect]
     Active Substance: CYCLOPHOSPHAMIDE
     Indication: Diffuse large B-cell lymphoma
     Dosage: UNK (R-CHOP 1ST COURSE)
     Route: 065
  8. CYCLOPHOSPHAMIDE [Suspect]
     Active Substance: CYCLOPHOSPHAMIDE
     Indication: Non-Hodgkin^s lymphoma
     Dosage: UNK (R-CHOP 2ND COURSE)
     Route: 065
  9. CYCLOPHOSPHAMIDE [Suspect]
     Active Substance: CYCLOPHOSPHAMIDE
     Dosage: UNK (R-CHOP 3RD COURSE)
     Route: 065
  10. RITUXIMAB [Suspect]
     Active Substance: RITUXIMAB
     Indication: Diffuse large B-cell lymphoma
     Dosage: UNK (R-CHOP 1ST COURSE)
     Route: 065
  11. RITUXIMAB [Suspect]
     Active Substance: RITUXIMAB
     Indication: Non-Hodgkin^s lymphoma
     Dosage: UNK (R-CHOP 2ND COURSE)
     Route: 065
  12. RITUXIMAB [Suspect]
     Active Substance: RITUXIMAB
     Dosage: UNK (R-CHOP 3RD COURSE)
     Route: 065
  13. VINCRISTINE [Suspect]
     Active Substance: VINCRISTINE
     Indication: Diffuse large B-cell lymphoma
     Dosage: UNK (R-CHOP 1ST COURSE)
     Route: 065
  14. VINCRISTINE [Suspect]
     Active Substance: VINCRISTINE
     Indication: Non-Hodgkin^s lymphoma
     Dosage: UNK (R-CHOP 2ND COURSE)
     Route: 065
  15. VINCRISTINE [Suspect]
     Active Substance: VINCRISTINE
     Dosage: UNK (R-CHOP 3RD COURSE)
     Route: 065
  16. ASPIRIN [Concomitant]
     Active Substance: ASPIRIN
     Indication: Acute myocardial infarction
     Dosage: UNK
     Route: 065
  17. CLOPIDOGREL [Concomitant]
     Active Substance: CLOPIDOGREL BISULFATE
     Indication: Acute myocardial infarction
     Dosage: UNK
     Route: 065
  18. METOPROLOL [Concomitant]
     Active Substance: METOPROLOL
     Indication: Acute myocardial infarction
     Dosage: UNK
     Route: 065
  19. SIMVASTATIN [Concomitant]
     Active Substance: SIMVASTATIN
     Indication: Acute myocardial infarction
     Dosage: UNK
     Route: 065

REACTIONS (5)
  - Acute coronary syndrome [Recovered/Resolved]
  - Chest pain [Recovered/Resolved]
  - Electrocardiogram ST segment elevation [Recovered/Resolved]
  - Coronary angioplasty [Recovered/Resolved]
  - Off label use [Unknown]
